FAERS Safety Report 13611290 (Version 1)
Quarter: 2017Q2

REPORT INFORMATION
  Report Type: Spontaneous
  Country: DE (occurrence: DE)
  Receive Date: 20170605
  Receipt Date: 20170605
  Transmission Date: 20170830
  Serious: Yes (Other)
  Sender: FDA-Public Use
  Company Number: DE-PFIZER INC-2017243279

PATIENT
  Age: 95 Year
  Sex: Female

DRUGS (1)
  1. PANTOZOL [Suspect]
     Active Substance: PANTOPRAZOLE SODIUM
     Indication: VOMITING
     Dosage: 20 MG, UNK
     Route: 065
     Dates: end: 201705

REACTIONS (2)
  - Haematemesis [Unknown]
  - Product use in unapproved indication [Unknown]

NARRATIVE: CASE EVENT DATE: 201705
